FAERS Safety Report 9484975 (Version 1)
Quarter: 2013Q3

REPORT INFORMATION
  Report Type: Spontaneous
  Country: FR (occurrence: FR)
  Receive Date: 20130828
  Receipt Date: 20130828
  Transmission Date: 20140515
  Serious: Yes (Hospitalization)
  Sender: FDA-Public Use
  Company Number: FR-B.I. PHARMACEUTICALS,INC./RIDGEFIELD-2013-FF-02145FF

PATIENT
  Sex: Male

DRUGS (7)
  1. PRADAXA [Suspect]
     Indication: ISCHAEMIC STROKE
     Dosage: 220 MG
     Route: 048
     Dates: start: 20130506, end: 20130708
  2. FLUOXETINE [Suspect]
     Indication: DEPRESSION
     Dosage: 20 MG
     Route: 048
     Dates: start: 20130411, end: 20130708
  3. PERINDOPRIL [Suspect]
     Indication: HYPERTENSION
     Dosage: 4 MG
     Route: 048
     Dates: start: 20130514, end: 20130705
  4. DOLIPRANE [Suspect]
     Indication: MUSCULOSKELETAL PAIN
     Dosage: 4500 MG
     Route: 048
     Dates: start: 20130403, end: 20130405
  5. TAHOR [Suspect]
     Indication: PROPHYLAXIS
     Dosage: 40 MG
     Route: 048
     Dates: start: 20130403, end: 20130705
  6. DAFALGAN CODEINE [Suspect]
     Indication: MUSCULOSKELETAL PAIN
     Route: 048
     Dates: start: 20130613, end: 20130703
  7. DUPHALAC [Suspect]
     Indication: CONSTIPATION
     Route: 048
     Dates: start: 20130613, end: 20130705

REACTIONS (1)
  - Neutropenia [Recovered/Resolved]
